FAERS Safety Report 8571564-1 (Version None)
Quarter: 2012Q3

REPORT INFORMATION
  Report Type: 
  Country: None (occurrence: None)
  Receive Date: 20120724
  Receipt Date: 20120717
  Transmission Date: 20120928
  Serious: Yes (Death, Other)
  Sender: FDA-Public Use
  Company Number: ADR-2012-01328

PATIENT
  Sex: Male

DRUGS (2)
  1. LIORESAL [Suspect]
     Indication: MUSCLE SPASTICITY
     Dosage: 360 MCG/DAY
  2. LIORESAL [Suspect]
     Indication: MULTIPLE SCLEROSIS
     Dosage: 360 MCG/DAY

REACTIONS (5)
  - PNEUMONIA [None]
  - IMPAIRED HEALING [None]
  - SEPSIS [None]
  - IMPLANT SITE HAEMATOMA [None]
  - URINARY TRACT INFECTION [None]
